FAERS Safety Report 15942695 (Version 1)
Quarter: 2019Q1

REPORT INFORMATION
  Report Type: Spontaneous
  Country: US (occurrence: US)
  Receive Date: 20190118
  Receipt Date: 20190118
  Transmission Date: 20190417
  Serious: Yes (Death)
  Sender: FDA-Public Use
  Company Number: None

PATIENT
  Age: 76 Year
  Sex: Male
  Weight: 103 kg

DRUGS (1)
  1. PRE-FILLED/LABELED DOBUTAMINE [Suspect]
     Active Substance: DOBUTAMINE\DOBUTAMINE HYDROCHLORIDE

REACTIONS (6)
  - Incorrect dose administered by device [None]
  - Product dispensing error [None]
  - Device programming error [None]
  - Cardiac procedure complication [None]
  - Cardiac arrest [None]
  - Product label confusion [None]

NARRATIVE: CASE EVENT DATE: 201812
